FAERS Safety Report 8009925-1 (Version None)
Quarter: 2011Q4

REPORT INFORMATION
  Report Type: 
  Country: None (occurrence: None)
  Receive Date: 20111228
  Receipt Date: 20111219
  Transmission Date: 20120403
  Serious: Yes (Other)
  Sender: FDA-Public Use
  Company Number: PHHY2011MX111301

PATIENT
  Sex: Female

DRUGS (3)
  1. DIOVAN [Suspect]
     Indication: HYPERTENSION
     Dosage: 1 DF (160 MG), DAILY
     Dates: start: 20110619, end: 20111216
  2. DIOVAN [Suspect]
     Dosage: 1 DF(80 MG), UNK
  3. ACETYLSALICYLIC ACID SRT [Concomitant]
     Dosage: 1 DF, DAILY

REACTIONS (8)
  - HYPOTENSION [None]
  - BLOOD CHOLESTEROL INCREASED [None]
  - AORTIC DILATATION [None]
  - NASOPHARYNGITIS [None]
  - SOMNOLENCE [None]
  - APATHY [None]
  - FATIGUE [None]
  - LISTLESS [None]
